FAERS Safety Report 5339833-6 (Version None)
Quarter: 2007Q2

REPORT INFORMATION
  Report Type: 
  Country: None (occurrence: None)
  Receive Date: 20070531
  Receipt Date: 20070521
  Transmission Date: 20071010
  Serious: Yes (Death, Life-Threatening, Disabling)
  Sender: FDA-Public Use
  Company Number: GB-JNJFOC-20070204147

PATIENT
  Sex: Male
  Weight: 58 kg

DRUGS (19)
  1. REMICADE [Suspect]
     Indication: COLITIS ULCERATIVE
     Route: 042
  2. PREDNISOLONE [Concomitant]
     Indication: COLITIS ULCERATIVE
     Route: 048
  3. AZATHIOPRINE [Concomitant]
     Indication: COLITIS ULCERATIVE
     Route: 048
  4. ISMN [Concomitant]
     Indication: ANGINA PECTORIS
  5. TILDIEM [Concomitant]
     Indication: ANGINA PECTORIS
  6. DIPYRIDAMOLE [Concomitant]
     Indication: CARDIOVASCULAR DISORDER
  7. NITROGLYCERIN [Concomitant]
     Indication: ANGINA PECTORIS
  8. PERINDOPRIL [Concomitant]
     Indication: HYPERTENSION
  9. CITALOPRAM HYDROBROMIDE [Concomitant]
     Indication: ANXIETY
  10. ASPIRIN [Concomitant]
     Indication: CARDIOVASCULAR DISORDER
  11. ASPIRIN [Concomitant]
     Indication: ANGINA PECTORIS
  12. SYNACORT [Concomitant]
     Indication: CHRONIC OBSTRUCTIVE PULMONARY DISEASE
     Route: 055
  13. SYNACORT [Concomitant]
     Indication: ASTHMA
     Dosage: 2 PUFFS / DAY
     Route: 055
  14. SALBUTAMOL [Concomitant]
     Indication: CHRONIC OBSTRUCTIVE PULMONARY DISEASE
     Route: 055
  15. SALBUTAMOL [Concomitant]
     Indication: ASTHMA
     Dosage: 2 PUFFS PRN
     Route: 055
  16. UNKNOWN MEDICATION [Concomitant]
     Indication: HYPERTENSION
  17. UNKNOWN MEDICATION [Concomitant]
     Indication: CHRONIC OBSTRUCTIVE PULMONARY DISEASE
  18. UNKNOWN MEDICATION [Concomitant]
     Indication: ASTHMA
  19. UNKNOWN MEDICATION [Concomitant]
     Indication: MYOCARDIAL ISCHAEMIA

REACTIONS (2)
  - BACTERIAL CULTURE POSITIVE [None]
  - PNEUMONIA [None]
